FAERS Safety Report 7225279-2 (Version None)
Quarter: 2011Q1

REPORT INFORMATION
  Report Type: 
  Country: None (occurrence: None)
  Receive Date: 20110113
  Receipt Date: 20110110
  Transmission Date: 20110831
  Serious: Yes (Hospitalization)
  Sender: FDA-Public Use
  Company Number: B0693381A

PATIENT
  Age: 80 Year
  Sex: Male

DRUGS (6)
  1. DACORTIN [Concomitant]
     Dosage: 20MG TWICE PER DAY
     Route: 048
     Dates: start: 20100710
  2. ALDACTACINE [Concomitant]
  3. UROLOSIN [Concomitant]
     Indication: BENIGN PROSTATIC HYPERPLASIA
     Route: 048
     Dates: start: 20090101
  4. SINTROM [Suspect]
     Indication: ATRIAL FIBRILLATION
     Route: 065
     Dates: start: 20050101, end: 20101106
  5. CARDYL [Concomitant]
     Route: 048
  6. TAGAMET [Suspect]
     Route: 065
     Dates: start: 20100930

REACTIONS (2)
  - MUSCLE HAEMORRHAGE [None]
  - DRUG INTERACTION [None]
